FAERS Safety Report 7547119-4 (Version None)
Quarter: 2011Q2

REPORT INFORMATION
  Report Type: 
  Country: None (occurrence: None)
  Receive Date: 20110607
  Receipt Date: 20110525
  Transmission Date: 20111010
  Serious: Yes (Hospitalization)
  Sender: FDA-Public Use
  Company Number: 2011SP024329

PATIENT
  Age: 58 Year
  Sex: Male

DRUGS (1)
  1. INTRON A [Suspect]
     Indication: HEPATITIS C
     Dosage: 10 MIU;QD;IM
     Route: 030

REACTIONS (18)
  - PYREXIA [None]
  - HEADACHE [None]
  - ABNORMAL BEHAVIOUR [None]
  - DEPRESSED MOOD [None]
  - SUICIDAL IDEATION [None]
  - MUSCLE CONTRACTURE [None]
  - DEMENTIA ALZHEIMER'S TYPE [None]
  - SUICIDE ATTEMPT [None]
  - RESTLESSNESS [None]
  - AGRAPHIA [None]
  - SPEECH DISORDER [None]
  - PNEUMONIA ASPIRATION [None]
  - MEMORY IMPAIRMENT [None]
  - DISORIENTATION [None]
  - INSOMNIA [None]
  - INCONTINENCE [None]
  - PARAPHILIA [None]
  - MOVEMENT DISORDER [None]
